FAERS Safety Report 23249441 (Version 1)
Quarter: 2023Q4

REPORT INFORMATION
  Report Type: Spontaneous
  Country: CN (occurrence: None)
  Receive Date: 20231201
  Receipt Date: 20231201
  Transmission Date: 20240110
  Serious: Yes (Disabling, Other)
  Sender: FDA-Public Use
  Company Number: CN-ROCHE-3464856

PATIENT
  Age: 41 Year
  Sex: Male
  Weight: 75 kg

DRUGS (9)
  1. PIPERACILLIN SODIUM\TAZOBACTAM SODIUM [Suspect]
     Active Substance: PIPERACILLIN SODIUM\TAZOBACTAM SODIUM
     Indication: Liver abscess
     Route: 041
     Dates: start: 20231027, end: 20231030
  2. MEROPENEM [Suspect]
     Active Substance: MEROPENEM
     Indication: Liver abscess
     Route: 041
     Dates: start: 20231023, end: 20231027
  3. DOXYCYCLINE HYCLATE [Suspect]
     Active Substance: DOXYCYCLINE HYCLATE
     Indication: Liver abscess
     Route: 048
     Dates: start: 20231023, end: 20231107
  4. TAMIFLU [Suspect]
     Active Substance: OSELTAMIVIR PHOSPHATE
     Indication: Viral infection
     Route: 048
     Dates: start: 20231024, end: 20231107
  5. SODIUM CHLORIDE [Concomitant]
     Active Substance: SODIUM CHLORIDE
     Route: 041
     Dates: start: 20231023, end: 20231111
  6. SODIUM CHLORIDE [Concomitant]
     Active Substance: SODIUM CHLORIDE
     Route: 041
     Dates: start: 20231027, end: 20231030
  7. SODIUM CHLORIDE [Concomitant]
     Active Substance: SODIUM CHLORIDE
     Route: 041
     Dates: start: 20231101, end: 20231114
  8. TIGECYCLINE [Concomitant]
     Active Substance: TIGECYCLINE
     Route: 041
     Dates: start: 20231101, end: 20231114
  9. MEROPENEM [Concomitant]
     Active Substance: MEROPENEM
     Route: 041
     Dates: start: 20231030, end: 20231111

REACTIONS (4)
  - Rash [Recovering/Resolving]
  - Respiratory failure [Unknown]
  - Shock [Unknown]
  - Infection [Unknown]

NARRATIVE: CASE EVENT DATE: 20231030
